FAERS Safety Report 6039994-X (Version None)
Quarter: 2009Q1

REPORT INFORMATION
  Report Type: 
  Country: None (occurrence: None)
  Receive Date: 20090116
  Receipt Date: 20071109
  Transmission Date: 20090719
  Serious: No
  Sender: FDA-Public Use
  Company Number: US-BRISTOL-MYERS SQUIBB COMPANY-13977004

PATIENT
  Age: 5 Year
  Sex: Male

DRUGS (3)
  1. ABILIFY [Suspect]
     Dates: start: 20071102
  2. KETOCONAZOLE [Concomitant]
  3. ZYRTEC [Concomitant]
     Dosage: DOSAGE ON 11-FEB-2007 AND 11-MAR-2007

REACTIONS (2)
  - NAUSEA [None]
  - VOMITING [None]
